FAERS Safety Report 8246082-0 (Version None)
Quarter: 2012Q1

REPORT INFORMATION
  Report Type: 
  Country: None (occurrence: None)
  Receive Date: 20120330
  Receipt Date: 20120327
  Transmission Date: 20120608
  Serious: Yes (Other)
  Sender: FDA-Public Use
  Company Number: PHEH2009US17987

PATIENT
  Sex: Male

DRUGS (40)
  1. MIRALAX [Concomitant]
  2. SPIRIVA [Concomitant]
  3. VANCOMYCIN [Concomitant]
  4. MEGACE [Concomitant]
  5. CYMBALTA [Concomitant]
  6. AMBIEN [Concomitant]
  7. SENOKOT                                 /UNK/ [Concomitant]
  8. LAPATINIB [Concomitant]
  9. PREDNISONE TAB [Concomitant]
  10. CIPROFLOXACIN [Concomitant]
  11. TYKERB [Concomitant]
  12. DECADRON [Concomitant]
  13. XANAX [Concomitant]
  14. ZOFRAN [Concomitant]
  15. ZETIA [Concomitant]
  16. GABAPENTIN [Concomitant]
  17. COUMADIN [Concomitant]
  18. REGLAN [Concomitant]
  19. NEURONTIN [Concomitant]
  20. XELODA [Suspect]
     Indication: BREAST CANCER METASTATIC
  21. LEVAQUIN [Concomitant]
  22. MORPHINE SULFATE [Concomitant]
  23. ATIVAN [Concomitant]
  24. DURAGESIC-100 [Concomitant]
  25. MORPHINE [Concomitant]
  26. MS CONTIN [Concomitant]
  27. GUAIFENESIN [Concomitant]
  28. XOPENEX [Concomitant]
  29. CRESTOR [Concomitant]
  30. ZOMETA [Suspect]
     Route: 042
  31. COMBIVENT [Concomitant]
  32. PROTONIX [Concomitant]
  33. PREVACID [Concomitant]
  34. MARINOL [Concomitant]
  35. ARIXTRA [Concomitant]
  36. ADVAIR DISKUS 100/50 [Concomitant]
  37. CHANTIX [Concomitant]
  38. FENTANYL [Concomitant]
  39. TYLENOL [Concomitant]
  40. HYDROCODONE BITARTRATE [Concomitant]

REACTIONS (12)
  - SEBORRHOEIC KERATOSIS [None]
  - OSTEONECROSIS OF JAW [None]
  - PAIN [None]
  - INFECTION [None]
  - EMOTIONAL DISTRESS [None]
  - ANXIETY [None]
  - SPINAL HAEMANGIOMA [None]
  - INJURY [None]
  - PHYSICAL DISABILITY [None]
  - OVERDOSE [None]
  - ACNE [None]
  - DEFORMITY [None]
